FAERS Safety Report 6318562-6 (Version None)
Quarter: 2009Q3

REPORT INFORMATION
  Report Type: 
  Country: None (occurrence: None)
  Receive Date: 20090821
  Receipt Date: 20090817
  Transmission Date: 20100115
  Serious: Yes (Other)
  Sender: FDA-Public Use
  Company Number: PHHY2009US34526

PATIENT
  Weight: 1.6 kg

DRUGS (10)
  1. LOPRESOR [Suspect]
     Route: 064
  2. LOPRESOR [Suspect]
     Dosage: 25 MG, BID
     Route: 064
  3. ASPIRIN [Suspect]
     Dosage: 81 MG, QD
     Route: 064
  4. HEPARIN [Suspect]
     Route: 064
  5. HEPARIN [Suspect]
     Dosage: 5000 UNITS
     Route: 064
  6. NITROGLYCERIN [Suspect]
     Route: 064
  7. LABETALOL HCL [Suspect]
     Dosage: 50 MG, BID
     Route: 064
  8. CLOPIDOGREL [Suspect]
     Dosage: 600 MG, UNK
     Route: 064
  9. RAMIPRIL [Concomitant]
     Dosage: 2.5 MG, UNK
     Route: 064
  10. ATORVASTATIN [Concomitant]
     Dosage: 80 MG, UNK
     Route: 064

REACTIONS (3)
  - DRUG EXPOSURE DURING PREGNANCY [None]
  - PREMATURE BABY [None]
  - SMALL FOR DATES BABY [None]
